FAERS Safety Report 21550405 (Version 1)
Quarter: 2022Q4

REPORT INFORMATION
  Report Type: Other
  Country: None (occurrence: GB)
  Receive Date: 20221103
  Receipt Date: 20221103
  Transmission Date: 20230112
  Serious: Yes (Hospitalization, Other)
  Sender: FDA-Public Use
  Company Number: GB-MLMSERVICE-20221013-3859901-1

PATIENT
  Age: 5 Year
  Sex: Female
  Weight: 17 kg

DRUGS (3)
  1. NITROUS OXIDE [Suspect]
     Active Substance: NITROUS OXIDE
     Indication: General anaesthesia
     Route: 055
  2. ISOFLURANE [Suspect]
     Active Substance: ISOFLURANE
     Route: 055
  3. SEVOFLURANE [Suspect]
     Active Substance: SEVOFLURANE
     Route: 055

REACTIONS (2)
  - Electrocardiogram QT prolonged [Recovered/Resolved]
  - Atrioventricular block second degree [Recovered/Resolved]
